FAERS Safety Report 8885850 (Version 1)
Quarter: 2012Q4

REPORT INFORMATION
  Report Type: Report from Study
  Country: DE (occurrence: DE)
  Receive Date: 20121105
  Receipt Date: 20121105
  Transmission Date: 20130627
  Serious: Yes (Hospitalization)
  Sender: FDA-Public Use
  Company Number: PHHO2011DE03888

PATIENT
  Age: 66 Year
  Sex: Male
  Weight: 99 kg

DRUGS (3)
  1. HYDROCHLOROTHIAZIDE [Suspect]
     Dosage: UNK
     Route: 048
     Dates: start: 20110106
  2. PLACEBO [Suspect]
     Indication: CARDIAC FAILURE ACUTE
     Route: 048
     Dates: start: 20100709
  3. LASIX [Suspect]

REACTIONS (4)
  - Hypokalaemia [Recovered/Resolved]
  - Hypotension [Recovered/Resolved]
  - Cardiac failure acute [Recovered/Resolved]
  - Disease progression [Recovered/Resolved]
